FAERS Safety Report 7501979-1 (Version None)
Quarter: 2011Q2

REPORT INFORMATION
  Report Type: 
  Country: None (occurrence: None)
  Receive Date: 20110525
  Receipt Date: 20110513
  Transmission Date: 20111010
  Serious: Yes (Other)
  Sender: FDA-Public Use
  Company Number: GR-ELI_LILLY_AND_COMPANY-GR201105003717

PATIENT
  Sex: Female

DRUGS (3)
  1. TERIPARATIDE [Suspect]
     Indication: OSTEOPOROSIS
     Dosage: 20 UG, QD
     Dates: start: 20110424, end: 20110430
  2. MESTINON [Concomitant]
     Indication: MYASTHENIA GRAVIS
     Dosage: UNK
     Dates: start: 20010101
  3. PREZOLON [Concomitant]
     Indication: MYASTHENIA GRAVIS
     Dosage: 2.5 MG, QD
     Dates: start: 20050101

REACTIONS (2)
  - RED BLOOD CELL SEDIMENTATION RATE INCREASED [None]
  - MULTIPLE MYELOMA [None]
